FAERS Safety Report 6336780-8 (Version None)
Quarter: 2009Q3

REPORT INFORMATION
  Report Type: 
  Country: None (occurrence: None)
  Receive Date: 20090831
  Receipt Date: 20090831
  Transmission Date: 20100115
  Serious: Yes (Death, Life-Threatening, Hospitalization, Other)
  Sender: FDA-Public Use
  Company Number: None

PATIENT
  Age: 45 Year
  Sex: Male
  Weight: 81.6475 kg

DRUGS (1)
  1. CELLCEPT [Suspect]
     Indication: RENAL IMPAIRMENT
     Dosage: 2 TABLETS TWICE DAILY PO
     Route: 048
     Dates: start: 20080512, end: 20080806

REACTIONS (7)
  - ABASIA [None]
  - FLUID INTAKE REDUCED [None]
  - HYPOPHAGIA [None]
  - IMMOBILE [None]
  - PROGRESSIVE MULTIFOCAL LEUKOENCEPHALOPATHY [None]
  - SPEECH DISORDER [None]
  - VISUAL ACUITY REDUCED [None]
